FAERS Safety Report 6722782-6 (Version None)
Quarter: 2010Q2

REPORT INFORMATION
  Report Type: 
  Country: None (occurrence: None)
  Receive Date: 20100511
  Receipt Date: 20100503
  Transmission Date: 20101027
  Serious: Yes (Hospitalization, Other)
  Sender: FDA-Public Use
  Company Number: VISP-UK-1001S-0037

PATIENT
  Age: 64 Year
  Sex: Female
  Weight: 73 kg

DRUGS (11)
  1. VISIPAQUE [Suspect]
     Indication: CORONARY ARTERY DISEASE
     Dosage: SINGLE DOSE, I.A.
     Route: 014
     Dates: start: 20091215, end: 20091215
  2. VISIPAQUE [Suspect]
  3. HEPARIN SODIUM [Suspect]
     Indication: INTRAVENOUS CATHETER MANAGEMENT
     Dosage: I.A.
     Route: 014
     Dates: start: 20091215, end: 20091215
  4. ASPIRIN [Concomitant]
  5. LIDOCAINE [Concomitant]
  6. BENDROFLUAZIDE [Concomitant]
  7. FLUTICASONE PROPIONATE MICRONISED (FLIXONASE) [Concomitant]
  8. GLYCERYL TRINITRATE [Concomitant]
  9. LEVOTHYROXINE SODIUM [Concomitant]
  10. RANITIDINE [Concomitant]
  11. SIMVASTATIN [Concomitant]

REACTIONS (1)
  - CEREBROVASCULAR ACCIDENT [None]
